FAERS Safety Report 7095520-8 (Version None)
Quarter: 2010Q4

REPORT INFORMATION
  Report Type: 
  Country: None (occurrence: None)
  Receive Date: 20101103
  Receipt Date: 20101019
  Transmission Date: 20110411
  Serious: Yes (Other)
  Sender: FDA-Public Use
  Company Number: AUR-APL-2010-02679

PATIENT
  Age: 62 Year

DRUGS (5)
  1. RISPERIDONE [Suspect]
     Dosage: ORAL
     Route: 048
  2. CLOZAPINE [Suspect]
     Dosage: 50MG-DAILY
  3. CLOZAPINE [Suspect]
     Dosage: 125MG, DAILY
  4. CLOZAPINE [Suspect]
     Dosage: 75MG, DAILY
  5. CLOZAPINE [Suspect]
     Dosage: 100 MG, DAILY

REACTIONS (6)
  - ANTIPSYCHOTIC DRUG LEVEL BELOW THERAPEUTIC [None]
  - DYSARTHRIA [None]
  - DYSKINESIA [None]
  - DYSPHEMIA [None]
  - SPASMODIC DYSPHONIA [None]
  - SPEECH DISORDER [None]
